FAERS Safety Report 18436608 (Version 5)
Quarter: 2022Q1

REPORT INFORMATION
  Report Type: Spontaneous
  Country: RO (occurrence: RO)
  Receive Date: 20201028
  Receipt Date: 20220118
  Transmission Date: 20220423
  Serious: Yes (Hospitalization, Other)
  Sender: FDA-Public Use
  Company Number: RO-MYLANLABS-2020M1090167

PATIENT
  Age: 24 Year
  Sex: Female

DRUGS (11)
  1. TENOFOVIR DISOPROXIL [Suspect]
     Active Substance: TENOFOVIR DISOPROXIL
     Indication: HIV infection
     Dosage: UNK
     Route: 065
     Dates: start: 2019
  2. EMTRIVA [Suspect]
     Active Substance: EMTRICITABINE
     Indication: HIV infection
     Dosage: UNK
     Route: 065
     Dates: start: 2019
  3. EMTRIVA [Suspect]
     Active Substance: EMTRICITABINE
     Indication: Antiretroviral therapy
  4. TIVICAY [Suspect]
     Active Substance: DOLUTEGRAVIR SODIUM
     Indication: HIV infection
     Dosage: UNK
     Route: 065
     Dates: start: 2019
  5. TIVICAY [Suspect]
     Active Substance: DOLUTEGRAVIR SODIUM
     Indication: Antiretroviral therapy
  6. OFLOXACIN [Concomitant]
     Active Substance: OFLOXACIN
     Indication: Extrapulmonary tuberculosis
     Dosage: UNK
     Dates: start: 201909
  7. OFLOXACIN [Concomitant]
     Active Substance: OFLOXACIN
     Indication: Antibiotic therapy
  8. ETHAMBUTOL;ISONIAZID;RIFAMPICIN [Concomitant]
     Indication: Extrapulmonary tuberculosis
     Dosage: UNK
  9. ETHAMBUTOL [Concomitant]
     Active Substance: ETHAMBUTOL HYDROCHLORIDE
     Indication: Antibiotic therapy
     Dosage: UNK
     Dates: start: 201909
  10. RIFAMPIN [Concomitant]
     Active Substance: RIFAMPIN
     Indication: Antibiotic therapy
     Dosage: UNK
     Dates: start: 201909
  11. ISONIAZID [Concomitant]
     Active Substance: ISONIAZID
     Indication: Antibiotic therapy
     Dosage: UNK
     Dates: start: 201909

REACTIONS (8)
  - Intervertebral disc protrusion [Recovering/Resolving]
  - Pain [Unknown]
  - Back pain [Unknown]
  - Immune reconstitution inflammatory syndrome [Unknown]
  - Cytomegalovirus infection [Unknown]
  - Staphylococcal bacteraemia [Unknown]
  - Toxoplasmosis [Unknown]
  - Neurological symptom [Recovering/Resolving]

NARRATIVE: CASE EVENT DATE: 20190101
